FAERS Safety Report 6635416-6 (Version None)
Quarter: 2010Q1

REPORT INFORMATION
  Report Type: 
  Country: None (occurrence: None)
  Receive Date: 20100315
  Receipt Date: 20090922
  Transmission Date: 20100710
  Serious: No
  Sender: FDA-Public Use
  Company Number: US-ABBOTT-09P-163-0599346-00

PATIENT
  Sex: Male

DRUGS (2)
  1. DIVALPROEX SODIUM [Suspect]
     Indication: DRUG USE FOR UNKNOWN INDICATION
  2. DEPAKOTE ER [Concomitant]
     Indication: DRUG USE FOR UNKNOWN INDICATION

REACTIONS (1)
  - PLATELET COUNT DECREASED [None]
